FAERS Safety Report 9002369 (Version 2)
Quarter: 2013Q1

REPORT INFORMATION
  Report Type: Spontaneous
  Country: US (occurrence: GB)
  Receive Date: 20130107
  Receipt Date: 20130108
  Transmission Date: 20140127
  Serious: Yes (Other)
  Sender: FDA-Public Use
  Company Number: US-ABBOTT-13P-163-1030872-00

PATIENT
  Sex: 0

DRUGS (1)
  1. HUMIRA [Suspect]
     Indication: PRODUCT USED FOR UNKNOWN INDICATION
     Dosage: DOSE DOUBLED TO WEEKLY INSTEAD OF FORTNIGHTLY
     Dates: start: 2010

REACTIONS (9)
  - Intestinal fistula [Unknown]
  - Deep vein thrombosis [Unknown]
  - Drug effect decreased [Unknown]
  - Malnutrition [Unknown]
  - Crohn^s disease [Unknown]
  - Pyrexia [Unknown]
  - Vomiting [Unknown]
  - Abdominal pain upper [Unknown]
  - Wound complication [Unknown]
